FAERS Safety Report 10673639 (Version 1)
Quarter: 2014Q4

REPORT INFORMATION
  Report Type: Spontaneous
  Country: IT (occurrence: IT)
  Receive Date: 20141224
  Receipt Date: 20141224
  Transmission Date: 20150529
  Serious: Yes (Other)
  Sender: FDA-Public Use
  Company Number: PHHY2014IT166703

PATIENT
  Sex: Female
  Weight: 2.7 kg

DRUGS (8)
  1. CICLOSPORIN [Suspect]
     Active Substance: CYCLOSPORINE
     Dosage: MATRENAL DOSE OF 100MG, DAILY
     Route: 064
  2. METHYLPREDNISOLONE. [Suspect]
     Active Substance: METHYLPREDNISOLONE
     Dosage: MATERNAL DOSE OF 100MG, DAILY
     Route: 064
  3. CICLOSPORIN [Suspect]
     Active Substance: CYCLOSPORINE
     Indication: PRODUCT USED FOR UNKNOWN INDICATION
     Dosage: MATRENAL DOSE OF 250MG, DAILY
     Route: 064
     Dates: start: 2007
  4. METHYLPREDNISOLONE. [Suspect]
     Active Substance: METHYLPREDNISOLONE
     Dosage: MATERNAL DOSE OF 8MG, DAILY
     Route: 064
  5. ANTITHYMOCYTE IMMUNOGLOBULIN [Suspect]
     Active Substance: THYMOCYTE IMMUNE GLOBULIN NOS
     Indication: PRODUCT USED FOR UNKNOWN INDICATION
     Dosage: MATERNAL DOSE OF 40 ML FOR 5 DAYS
     Route: 064
  6. CICLOSPORIN [Suspect]
     Active Substance: CYCLOSPORINE
     Dosage: MATRENAL DOSE OF 150MG, DAILY
     Route: 064
  7. METHYLPREDNISOLONE. [Suspect]
     Active Substance: METHYLPREDNISOLONE
     Indication: PRODUCT USED FOR UNKNOWN INDICATION
     Dosage: MATERNAL DOSE OF 60 MG, QD FOR 15DAYS
     Route: 064
     Dates: start: 200502
  8. PREDNISOLONE. [Suspect]
     Active Substance: PREDNISOLONE
     Indication: PRODUCT USED FOR UNKNOWN INDICATION
     Route: 064

REACTIONS (2)
  - Foetal exposure during pregnancy [Unknown]
  - Low birth weight baby [Unknown]
